FAERS Safety Report 9642729 (Version 1)
Quarter: 2013Q4

REPORT INFORMATION
  Report Type: Spontaneous
  Country: DE (occurrence: DE)
  Receive Date: 20131024
  Receipt Date: 20131024
  Transmission Date: 20140711
  Serious: Yes (Congenital Anomaly)
  Sender: FDA-Public Use
  Company Number: DE-MYLANLABS-2013S1023656

PATIENT
  Age: 1 Day
  Sex: Female

DRUGS (4)
  1. LAMOTRIGINE [Suspect]
     Route: 064
     Dates: start: 20071221, end: 20080802
  2. PAROXETINE [Suspect]
     Route: 064
     Dates: start: 20071221, end: 20130802
  3. CHLORPROTHIXENE [Concomitant]
     Route: 064
     Dates: start: 20071221, end: 20080201
  4. FOLIO FORTE [Concomitant]
     Route: 064
     Dates: start: 20080126, end: 20080802

REACTIONS (5)
  - Exposure during pregnancy [Unknown]
  - Atrial septal defect [Unknown]
  - Jaundice [Unknown]
  - Anaemia [Unknown]
  - Premature baby [Unknown]
